FAERS Safety Report 26212884 (Version 1)
Quarter: 2025Q4

REPORT INFORMATION
  Report Type: Spontaneous
  Country: CH (occurrence: CH)
  Receive Date: 20251230
  Receipt Date: 20251230
  Transmission Date: 20260117
  Serious: Yes (Other)
  Sender: SANDOZ
  Company Number: CH-MLMSERVICE-20251211-PI746051-00218-4

PATIENT
  Age: 70 Year
  Sex: Female

DRUGS (2)
  1. METHOTREXATE [Suspect]
     Active Substance: METHOTREXATE
     Indication: Rheumatoid arthritis
     Dosage: 15 MG, QW (CUMULATIVE DOSE TO FIRST REACTION: 800 MG)
  2. PREDNISOLONE [Suspect]
     Active Substance: PREDNISOLONE
     Indication: Rheumatoid arthritis
     Dosage: 20 MG, QD (CUMULATIVE DOSE TO FIRST REACTION: 0.37 G)

REACTIONS (3)
  - Stress fracture [Recovered/Resolved]
  - Foot fracture [Recovered/Resolved]
  - Osteoporosis [Recovered/Resolved]
